FAERS Safety Report 8935954 (Version 1)
Quarter: 2012Q4

REPORT INFORMATION
  Report Type: 
  Country: US (occurrence: US)
  Receive Date: 20121130
  Receipt Date: 20121130
  Transmission Date: 20130627
  Serious: No
  Sender: FDA-Public Use
  Company Number: US-ABBOTT-12P-163-0991833-00

PATIENT
  Sex: Male
  Weight: 115.77 kg

DRUGS (3)
  1. ANDROGEL [Suspect]
     Indication: BLOOD TESTOSTERONE DECREASED
     Dosage: 2 pumps total
     Dates: start: 201201, end: 201204
  2. ANDROGEL [Suspect]
     Dosage: 4 pumps total
     Dates: start: 201204, end: 201209
  3. MELOXICAM [Concomitant]
     Indication: ARTHRITIS

REACTIONS (3)
  - Blood testosterone abnormal [Unknown]
  - Drug ineffective [Unknown]
  - Blood testosterone decreased [Unknown]
